FAERS Safety Report 7574853-2 (Version None)
Quarter: 2011Q2

REPORT INFORMATION
  Report Type: 
  Country: None (occurrence: None)
  Receive Date: 20110627
  Receipt Date: 20110614
  Transmission Date: 20111010
  Serious: Yes (Life-Threatening, Hospitalization)
  Sender: FDA-Public Use
  Company Number: US-BAYER-201031205NA

PATIENT
  Age: 19 Year
  Sex: Female
  Weight: 75 kg

DRUGS (3)
  1. PRENATAL VITAMINS [Concomitant]
  2. YAZ [Suspect]
     Indication: MENSTRUATION IRREGULAR
     Route: 048
     Dates: start: 20070101
  3. NEXIUM [Concomitant]
     Indication: GASTROOESOPHAGEAL REFLUX DISEASE
     Dosage: 40 MG, QD

REACTIONS (5)
  - GALLBLADDER DISORDER [None]
  - CARDIAC DISORDER [None]
  - SUPRAVENTRICULAR TACHYCARDIA [None]
  - CHOLECYSTITIS CHRONIC [None]
  - LIVER DISORDER [None]
